FAERS Safety Report 16998042 (Version 1)
Quarter: 2019Q4

REPORT INFORMATION
  Report Type: Spontaneous
  Country: US (occurrence: US)
  Receive Date: 20191029
  Receipt Date: 20191029
  Transmission Date: 20200122
  Serious: Yes (Hospitalization)
  Sender: FDA-Public Use
  Company Number: None

PATIENT
  Sex: Female

DRUGS (3)
  1. TACROLIMUS CAP 0.5 [Suspect]
     Active Substance: TACROLIMUS
  2. TACROLIMUS. [Suspect]
     Active Substance: TACROLIMUS
     Indication: MALAISE
     Route: 048
     Dates: start: 20190802
  3. TACROLIMUS. [Suspect]
     Active Substance: TACROLIMUS
     Indication: MALAISE
     Route: 048
     Dates: start: 20190802

REACTIONS (1)
  - Lung disorder [None]
